FAERS Safety Report 14269060 (Version 3)
Quarter: 2018Q2

REPORT INFORMATION
  Report Type: Spontaneous
  Country: HR (occurrence: HR)
  Receive Date: 20171211
  Receipt Date: 20180403
  Transmission Date: 20180711
  Serious: Yes (Death, Hospitalization, Other)
  Sender: FDA-Public Use
  Company Number: HR-MYLANLABS-2017M1077996

PATIENT
  Age: 53 Year
  Sex: Male

DRUGS (2)
  1. FLUCONAZOLE. [Suspect]
     Active Substance: FLUCONAZOLE
     Indication: CANDIDA INFECTION
     Dosage: UNK
  2. ACITRETIN. [Suspect]
     Active Substance: ACITRETIN
     Indication: PRODUCT USED FOR UNKNOWN INDICATION
     Dosage: UNK

REACTIONS (8)
  - Febrile neutropenia [Fatal]
  - Sepsis [Fatal]
  - Diabetes mellitus [Fatal]
  - Liver injury [Fatal]
  - Mycosis fungoides [Fatal]
  - Candida infection [Fatal]
  - Lymphoma [Fatal]
  - Autoimmune hepatitis [Fatal]
